FAERS Safety Report 17421475 (Version 3)
Quarter: 2020Q1

REPORT INFORMATION
  Report Type: Report from Study
  Country: US (occurrence: US)
  Receive Date: 20200214
  Receipt Date: 20200312
  Transmission Date: 20200409
  Serious: No
  Sender: FDA-Public Use
  Company Number: NVSC2020US037664

PATIENT
  Age: 69 Year
  Sex: Male

DRUGS (1)
  1. ENTRESTO [Suspect]
     Active Substance: SACUBITRIL\VALSARTAN
     Indication: CARDIAC FAILURE CONGESTIVE
     Dosage: 200 MG, BID (97MG SACUBITRIL /103MGVALSARTAN)
     Route: 048
     Dates: start: 2019

REACTIONS (3)
  - Nasopharyngitis [Recovering/Resolving]
  - Sinusitis [Not Recovered/Not Resolved]
  - Ear discomfort [Recovering/Resolving]

NARRATIVE: CASE EVENT DATE: 20200207
